FAERS Safety Report 18511528 (Version 1)
Quarter: 2020Q4

REPORT INFORMATION
  Report Type: Spontaneous
  Country: US (occurrence: US)
  Receive Date: 20201117
  Receipt Date: 20201117
  Transmission Date: 20210114
  Serious: Yes (Other)
  Sender: FDA-Public Use
  Company Number: US-SUNOVION-2020SUN003395

PATIENT
  Sex: Female
  Weight: 63 kg

DRUGS (6)
  1. VITAMIN D [Concomitant]
     Active Substance: VITAMIN D NOS
     Indication: ARTHRITIS
     Dosage: 1000 UNITS DAILY
  2. AMLODIPINE [Concomitant]
     Active Substance: AMLODIPINE BESYLATE
     Indication: HYPERTENSION
     Dosage: 10 MG, QD
  3. ASPIRIN. [Concomitant]
     Active Substance: ASPIRIN
     Indication: HYPERTENSION
     Dosage: AS NEEDED 1/2 PILL OF 81 MG
  4. MVI [Concomitant]
     Active Substance: VITAMINS
     Dosage: 1 GUMMY DAILY
  5. LUNESTA [Suspect]
     Active Substance: ESZOPICLONE
     Indication: INSOMNIA
     Dosage: 2 MG, QD AT NIGHT
     Route: 048
     Dates: start: 202007
  6. HYDROCHLOROTHIAZIDE. [Concomitant]
     Active Substance: HYDROCHLOROTHIAZIDE
     Indication: HYPERTENSION
     Dosage: 25 MG, QD
     Dates: start: 202007

REACTIONS (13)
  - Dyskinesia [Not Recovered/Not Resolved]
  - Wound [Recovering/Resolving]
  - Taste disorder [Not Recovered/Not Resolved]
  - Disturbance in attention [Unknown]
  - Fall [Unknown]
  - Arterial rupture [Unknown]
  - Glucose tolerance impaired [Unknown]
  - Dry mouth [Not Recovered/Not Resolved]
  - Contusion [Not Recovered/Not Resolved]
  - Muscle spasms [Not Recovered/Not Resolved]
  - Somnolence [Not Recovered/Not Resolved]
  - Eye haemorrhage [Unknown]
  - Mobility decreased [Not Recovered/Not Resolved]
